FAERS Safety Report 5387494-2 (Version None)
Quarter: 2007Q3

REPORT INFORMATION
  Report Type: 
  Country: None (occurrence: None)
  Receive Date: 20070703
  Receipt Date: 20070703
  Transmission Date: 20080115
  Serious: Yes (Life-Threatening, Hospitalization, Other)
  Sender: FDA-Public Use
  Company Number: None

PATIENT
  Age: 4 Year
  Sex: Male

DRUGS (3)
  1. FENTANYL TRANSDERMAL SYSTEM [Suspect]
     Indication: SEDATIVE THERAPY
     Dosage: INTRAVENOUS
     Route: 042
  2. MIDAZOLAM HCL [Suspect]
     Indication: SEDATIVE THERAPY
     Dosage: INTRAVENOUS
     Route: 042
  3. MORPHINE [Suspect]
     Indication: SEDATIVE THERAPY
     Dosage: INTRAVENOUS
     Route: 042

REACTIONS (9)
  - AGITATION [None]
  - DRUG WITHDRAWAL SYNDROME [None]
  - DYSKINESIA [None]
  - ELECTROENCEPHALOGRAM ABNORMAL [None]
  - INFUSION RELATED REACTION [None]
  - MOVEMENT DISORDER [None]
  - MYOCLONUS [None]
  - STATUS EPILEPTICUS [None]
  - UNRESPONSIVE TO STIMULI [None]
